FAERS Safety Report 7575416-5 (Version None)
Quarter: 2011Q2

REPORT INFORMATION
  Report Type: 
  Country: None (occurrence: None)
  Receive Date: 20110627
  Receipt Date: 20110620
  Transmission Date: 20111010
  Serious: Yes (Hospitalization, Other)
  Sender: FDA-Public Use
  Company Number: GB-B.I. PHARMACEUTICALS,INC./RIDGEFIELD-2011-UK-00482UK

PATIENT
  Sex: Male

DRUGS (2)
  1. MULTIPLE MEDICATIONS [Concomitant]
  2. MIRAPEXIN PROLONGED-RELEASE [Suspect]
     Indication: PARKINSON'S DISEASE
     Dosage: 2.1 MG
     Route: 048

REACTIONS (2)
  - URINARY RETENTION [None]
  - GLOMERULAR FILTRATION RATE DECREASED [None]
